FAERS Safety Report 5572266-6 (Version None)
Quarter: 2007Q4

REPORT INFORMATION
  Report Type: 
  Country: None (occurrence: None)
  Receive Date: 20071221
  Receipt Date: 20071211
  Transmission Date: 20080405
  Serious: Yes (Other)
  Sender: FDA-Public Use
  Company Number: US-PFIZER INC-2007105374

PATIENT
  Sex: Female
  Weight: 59.09 kg

DRUGS (3)
  1. LYRICA [Suspect]
     Indication: DIABETES MELLITUS
     Dates: start: 20070201, end: 20070201
  2. ANTI-DIABETICS [Concomitant]
  3. COUMADIN [Concomitant]

REACTIONS (2)
  - GAIT DISTURBANCE [None]
  - GENERAL PHYSICAL CONDITION ABNORMAL [None]
